FAERS Safety Report 7048029-1 (Version None)
Quarter: 2010Q4

REPORT INFORMATION
  Report Type: 
  Country: None (occurrence: None)
  Receive Date: 20101015
  Receipt Date: 20101008
  Transmission Date: 20110411
  Serious: Yes (Hospitalization)
  Sender: FDA-Public Use
  Company Number: A0886799A

PATIENT
  Age: 58 Year
  Sex: Female

DRUGS (1)
  1. AVANDIA [Suspect]
     Dosage: 4MG PER DAY
     Route: 048
     Dates: start: 20000701, end: 20070701

REACTIONS (4)
  - CHEST PAIN [None]
  - FRACTURE [None]
  - OEDEMA PERIPHERAL [None]
  - STENT PLACEMENT [None]
